FAERS Safety Report 13776953 (Version 2)
Quarter: 2017Q3

REPORT INFORMATION
  Report Type: Report from Study
  Country: ES (occurrence: ES)
  Receive Date: 20170720
  Receipt Date: 20170804
  Transmission Date: 20171127
  Serious: Yes (Death, Hospitalization, Other)
  Sender: FDA-Public Use
  Company Number: ES-B.I. PHARMACEUTICALS,INC./RIDGEFIELD-2017-BI-040816

PATIENT
  Age: 77 Year
  Sex: Male
  Weight: 45.5 kg

DRUGS (7)
  1. ADIRO [Concomitant]
     Active Substance: ASPIRIN
     Indication: AORTIC STENOSIS
     Route: 048
  2. DEXAMETHASONE. [Concomitant]
     Active Substance: DEXAMETHASONE
     Indication: TUMOUR PAIN
     Route: 048
  3. AFATINIB [Suspect]
     Active Substance: AFATINIB
     Indication: BLADDER CANCER
     Route: 048
     Dates: start: 20170518, end: 20170703
  4. DUOTRAV [Concomitant]
     Active Substance: TIMOLOL MALEATE\TRAVOPROST
     Indication: GLAUCOMA
  5. MST [Concomitant]
     Active Substance: MORPHINE SULFATE\NALTREXONE HYDROCHLORIDE
     Indication: BACK PAIN
     Route: 048
  6. TARDYFERON [Concomitant]
     Active Substance: FERROUS SULFATE
     Indication: ANAEMIA
     Route: 048
  7. BETMIGA [Concomitant]
     Active Substance: MIRABEGRON
     Indication: URINARY TRACT DISORDER
     Route: 048

REACTIONS (3)
  - Cardiac failure [Not Recovered/Not Resolved]
  - Acute coronary syndrome [Fatal]
  - Acute kidney injury [Not Recovered/Not Resolved]

NARRATIVE: CASE EVENT DATE: 20170703
